FAERS Safety Report 10012877 (Version 1)
Quarter: 2014Q1

REPORT INFORMATION
  Report Type: Spontaneous
  Country: US (occurrence: US)
  Receive Date: 20140314
  Receipt Date: 20140314
  Transmission Date: 20141002
  Serious: Yes (Hospitalization)
  Sender: FDA-Public Use
  Company Number: US-ASTRAZENECA-2014SE16483

PATIENT
  Age: 64 Year
  Sex: Female
  Weight: 60.8 kg

DRUGS (5)
  1. SYMBICORT [Suspect]
     Indication: CHRONIC OBSTRUCTIVE PULMONARY DISEASE
     Dosage: 80/4.5, 2 PUFFS BID
     Route: 055
     Dates: start: 201310, end: 201311
  2. OMEPRAZOLE [Suspect]
     Indication: GASTROOESOPHAGEAL REFLUX DISEASE
     Dosage: BID
     Route: 048
  3. KLONOPIN [Concomitant]
     Indication: ANXIETY
     Route: 048
     Dates: start: 201311
  4. ATIVAN [Concomitant]
     Indication: ANXIETY
     Dosage: UNKNOWN
     Dates: end: 201311
  5. OTHER DRUGS [Concomitant]

REACTIONS (5)
  - Dyspnoea [Recovered/Resolved]
  - Influenza [Recovered/Resolved]
  - Tenderness [Recovered/Resolved]
  - Arthralgia [Recovered/Resolved]
  - Off label use [Recovered/Resolved]
